FAERS Safety Report 4952478-2 (Version None)
Quarter: 2006Q1

REPORT INFORMATION
  Report Type: 
  Country: None (occurrence: None)
  Receive Date: 20060323
  Receipt Date: 20060314
  Transmission Date: 20060701
  Serious: Yes (Hospitalization, Other)
  Sender: FDA-Public Use
  Company Number: US-MERCK-0603USA02497

PATIENT
  Age: 2 Year
  Sex: Female
  Weight: 11 kg

DRUGS (5)
  1. SINGULAIR [Suspect]
     Indication: BRONCHIAL HYPERACTIVITY
     Route: 048
     Dates: start: 20060213, end: 20060224
  2. PULMICORT [Concomitant]
     Indication: BRONCHIAL HYPERACTIVITY
     Route: 048
     Dates: start: 20060213, end: 20060223
  3. ALBUTEROL [Concomitant]
     Route: 065
  4. OMNICEF [Suspect]
     Indication: BRONCHIAL HYPERACTIVITY
     Route: 048
     Dates: start: 20060213, end: 20060223
  5. ORAPRED [Concomitant]
     Indication: BRONCHIAL HYPERACTIVITY
     Route: 048
     Dates: start: 20060213, end: 20060217

REACTIONS (1)
  - ERYTHEMA MULTIFORME [None]
